FAERS Safety Report 9982079 (Version 1)
Quarter: 2014Q1

REPORT INFORMATION
  Report Type: Spontaneous
  Country: US (occurrence: US)
  Receive Date: 20140307
  Receipt Date: 20140307
  Transmission Date: 20141002
  Serious: No
  Sender: FDA-Public Use
  Company Number: US-ABBVIE-13P-163-1178518-00

PATIENT
  Age: 35 Year
  Sex: Female
  Weight: 90.8 kg

DRUGS (7)
  1. HUMIRA [Suspect]
     Indication: PSORIASIS
     Dates: start: 201305, end: 201306
  2. HUMIRA [Suspect]
     Dates: start: 201309
  3. TEGRETOL [Concomitant]
     Indication: AFFECTIVE DISORDER
  4. LUVOX [Concomitant]
     Indication: OBSESSIVE-COMPULSIVE DISORDER
  5. PHENOBARBITAL [Concomitant]
     Indication: DRUG THERAPY
  6. ATARAX [Concomitant]
     Indication: PRURITUS
  7. BENZODIAZEPINE [Concomitant]
     Indication: PRODUCT USED FOR UNKNOWN INDICATION

REACTIONS (5)
  - Poor quality drug administered [Unknown]
  - Cough [Recovered/Resolved]
  - Injection site pain [Recovered/Resolved]
  - Psoriasis [Not Recovered/Not Resolved]
  - Bronchitis [Recovered/Resolved]
